FAERS Safety Report 7741186-0 (Version None)
Quarter: 2011Q3

REPORT INFORMATION
  Report Type: 
  Country: None (occurrence: None)
  Receive Date: 20110909
  Receipt Date: 20110829
  Transmission Date: 20111222
  Serious: Yes (Other)
  Sender: FDA-Public Use
  Company Number: US-ELI_LILLY_AND_COMPANY-US201108009269

PATIENT
  Sex: Female

DRUGS (4)
  1. CYMBALTA [Suspect]
     Indication: ANXIETY
     Dosage: 120 MG, QD
  2. CELEBREX [Concomitant]
  3. XANAX                                   /USA/ [Concomitant]
     Dosage: 0.5 MG, BID
  4. LISINOPRIL                              /USA/ [Concomitant]

REACTIONS (3)
  - TENDON INJURY [None]
  - LIGAMENT INJURY [None]
  - ACCIDENT [None]
